FAERS Safety Report 4317370-5 (Version None)
Quarter: 2004Q1

REPORT INFORMATION
  Report Type: 
  Country: None (occurrence: None)
  Receive Date: 20040312
  Receipt Date: 20040302
  Transmission Date: 20041129
  Serious: Yes (Other)
  Sender: FDA-Public Use
  Company Number: 2004014664

PATIENT
  Sex: Female

DRUGS (5)
  1. DILANTIN KAPSEAL [Suspect]
     Indication: CONVULSION
     Dosage: ORAL
     Route: 048
  2. LEVOTHYROXINE SODIUM [Suspect]
     Indication: ILL-DEFINED DISORDER
  3. PAROXETINE HCL [Concomitant]
  4. ATORVASTATIN CALCIUM [Concomitant]
  5. BACLOFEN [Concomitant]

REACTIONS (3)
  - ANTICONVULSANT DRUG LEVEL DECREASED [None]
  - DRUG INTERACTION [None]
  - DRUG TOXICITY [None]
